FAERS Safety Report 9552588 (Version 1)
Quarter: 2013Q3

REPORT INFORMATION
  Report Type: Spontaneous
  Country: US (occurrence: None)
  Receive Date: 20130729
  Receipt Date: 20130729
  Transmission Date: 20140515
  Serious: Yes (Other)
  Sender: FDA-Public Use
  Company Number: 1306USA000696

PATIENT
  Age: 51 Year
  Sex: Female

DRUGS (3)
  1. PEGINTRON (PEGINTERFERON ALFA-2B) POWDER FOR INJECTION [Suspect]
     Indication: HEPATITIS C
     Dosage: REDIPEN
     Dates: start: 20130308, end: 20130503
  2. REBETOL (RIBAVIRIN) CAPSULE [Suspect]
     Indication: HEPATITIS C
     Dates: start: 20130308, end: 20130503
  3. VICTRELIS (BOCEPREVIR) CAPSULE [Suspect]
     Indication: CHRONIC HEPATITIS C
     Dates: start: 20130405, end: 20130505

REACTIONS (10)
  - Hypersensitivity [None]
  - Rash [None]
  - Pruritus [None]
  - Flatulence [None]
  - Abdominal distension [None]
  - Fatigue [None]
  - Nausea [None]
  - Dysgeusia [None]
  - Visual acuity reduced [None]
  - Headache [None]
